FAERS Safety Report 5997999-9 (Version None)
Quarter: 2008Q4

REPORT INFORMATION
  Report Type: 
  Country: None (occurrence: None)
  Receive Date: 20081211
  Receipt Date: 20081201
  Transmission Date: 20090506
  Serious: Yes (Other)
  Sender: FDA-Public Use
  Company Number: 231922K08USA

PATIENT
  Age: 39 Year
  Sex: Female

DRUGS (3)
  1. REBIF [Suspect]
     Indication: MULTIPLE SCLEROSIS
     Dosage: 44 MCG, 3 IN 1 WEEKS, SUBCUTANEOUS
     Route: 058
     Dates: start: 20070924
  2. TYLENOL (COTYLENOL) [Concomitant]
  3. BENADRYL [Concomitant]

REACTIONS (3)
  - CONSTIPATION [None]
  - ERUCTATION [None]
  - FIBROMA [None]
